FAERS Safety Report 15280862 (Version 1)
Quarter: 2018Q3

REPORT INFORMATION
  Report Type: Spontaneous
  Country: US (occurrence: US)
  Receive Date: 20180731
  Receipt Date: 20180731
  Transmission Date: 20181010
  Serious: Yes (Other)
  Sender: FDA-Public Use
  Company Number: None

PATIENT
  Age: 44 Year
  Sex: Female
  Weight: 90 kg

DRUGS (1)
  1. ODACTRA [Suspect]
     Active Substance: DERMATOPHAGOIDES FARINAE\DERMATOPHAGOIDES PTERONYSSINUS
     Indication: MITE ALLERGY
     Dosage: ?          OTHER STRENGTH:?;QUANTITY:1 TABLET(S);?
     Route: 060
     Dates: start: 20180413, end: 20180608

REACTIONS (4)
  - Migraine [None]
  - Reaction to excipient [None]
  - Impaired work ability [None]
  - Therapy non-responder [None]

NARRATIVE: CASE EVENT DATE: 20180423
